FAERS Safety Report 16828822 (Version 1)
Quarter: 2019Q3

REPORT INFORMATION
  Report Type: Report from Study
  Country: CA (occurrence: CA)
  Receive Date: 20190919
  Receipt Date: 20190919
  Transmission Date: 20191005
  Serious: Yes (Life-Threatening)
  Sender: FDA-Public Use
  Company Number: CA-JNJFOC-20190918568

PATIENT
  Age: 59 Year
  Sex: Female
  Weight: 127.01 kg

DRUGS (1)
  1. REMICADE [Suspect]
     Active Substance: INFLIXIMAB
     Indication: CROHN^S DISEASE
     Route: 042
     Dates: start: 20140830

REACTIONS (5)
  - Uterine cancer [Unknown]
  - Metastases to lung [Unknown]
  - Product use issue [Unknown]
  - Off label use [Unknown]
  - Muscle strain [Unknown]

NARRATIVE: CASE EVENT DATE: 20140830
